FAERS Safety Report 24351422 (Version 8)
Quarter: 2025Q1

REPORT INFORMATION
  Report Type: Report from Study
  Country: DE (occurrence: DE)
  Receive Date: 20240923
  Receipt Date: 20250313
  Transmission Date: 20250409
  Serious: Yes (Other)
  Sender: UCB
  Company Number: DE-UCBSA-2024047098

PATIENT
  Sex: Female
  Weight: 96 kg

DRUGS (9)
  1. BIMEKIZUMAB [Suspect]
     Active Substance: BIMEKIZUMAB
     Indication: Psoriatic arthropathy
     Dosage: 160 MILLIGRAM, EV 4 WEEKS
     Route: 058
     Dates: start: 20240417, end: 202408
  2. BIMEKIZUMAB [Suspect]
     Active Substance: BIMEKIZUMAB
     Dosage: 160 MILLIGRAM, EV 4 WEEKS
     Route: 058
     Dates: start: 20240907, end: 202501
  3. OLMESARTAN [Concomitant]
     Active Substance: OLMESARTAN
     Indication: Hypertension
     Dosage: 20 MILLIGRAM, ONCE DAILY (QD)
     Dates: start: 202201
  4. PROGESTERONE [Concomitant]
     Active Substance: PROGESTERONE
     Indication: Menopause
     Dosage: 200 MILLIGRAM, ONCE DAILY (QD)
     Dates: start: 202201
  5. CHOLECALCIFEROL [Concomitant]
     Active Substance: CHOLECALCIFEROL
     Indication: Vitamin D deficiency
     Dosage: 20000 INTERNATIONAL UNIT, EV 2 WEEKS(QOW)
     Dates: start: 202201
  6. DOXYCYCLINE [Concomitant]
     Active Substance: DOXYCYCLINE
     Indication: Rosacea
     Dosage: 40 MILLIGRAM, ONCE DAILY (QD)
     Dates: start: 202201
  7. CLOBETASOL PROPIONATE [Concomitant]
     Active Substance: CLOBETASOL PROPIONATE
     Indication: Psoriasis
     Dates: start: 202201
  8. ESTRADIOL [Concomitant]
     Active Substance: ESTRADIOL
     Indication: Menopause
     Dosage: 0.62 MILLIGRAM, ONCE DAILY (QD)
     Dates: start: 202201
  9. ATORVASTATIN [Concomitant]
     Active Substance: ATORVASTATIN
     Indication: Hypercholesterolaemia
     Dosage: 10 MILLIGRAM, ONCE DAILY (QD)
     Dates: start: 20230421

REACTIONS (5)
  - Systemic lupus erythematosus [Recovered/Resolved]
  - Pericardial effusion [Recovered/Resolved]
  - Tendon pain [Not Recovered/Not Resolved]
  - Respiratory tract infection [Recovered/Resolved]
  - Tonsillitis bacterial [Recovered/Resolved]

NARRATIVE: CASE EVENT DATE: 20240701
